FAERS Safety Report 25981237 (Version 1)
Quarter: 2025Q4

REPORT INFORMATION
  Report Type: Other
  Country: CA (occurrence: CA)
  Receive Date: 20251030
  Receipt Date: 20251030
  Transmission Date: 20260117
  Serious: Yes (Other)
  Sender: AMARIN PHARMA, INC.
  Company Number: CA-Amarin Pharma  Inc-2025AMR000659

PATIENT
  Age: 74 Year
  Sex: Female

DRUGS (1)
  1. VASCEPA [Suspect]
     Active Substance: ICOSAPENT ETHYL
     Indication: Cardiovascular event prophylaxis

REACTIONS (1)
  - Cataract operation [Unknown]
